FAERS Safety Report 8388458-7 (Version None)
Quarter: 2012Q2

REPORT INFORMATION
  Report Type: 
  Country: None (occurrence: None)
  Receive Date: 20120525
  Receipt Date: 20120516
  Transmission Date: 20120825
  Serious: Yes (Hospitalization)
  Sender: FDA-Public Use
  Company Number: BR-ASTRAZENECA-2012SE31868

PATIENT
  Age: 606 Month
  Sex: Male
  Weight: 83 kg

DRUGS (1)
  1. CRESTOR [Suspect]
     Indication: LIPIDS INCREASED
     Route: 048
     Dates: start: 20110701, end: 20120201

REACTIONS (3)
  - DRUG INEFFECTIVE [None]
  - ANGINA PECTORIS [None]
  - LIPIDS INCREASED [None]
